FAERS Safety Report 7367357-3 (Version None)
Quarter: 2011Q1

REPORT INFORMATION
  Report Type: 
  Country: None (occurrence: None)
  Receive Date: 20110322
  Receipt Date: 20110310
  Transmission Date: 20110831
  Serious: Yes (Other)
  Sender: FDA-Public Use
  Company Number: BR-PFIZER INC-2011053241

PATIENT
  Age: 42 Year
  Sex: Female
  Weight: 60 kg

DRUGS (4)
  1. CHAMPIX [Suspect]
     Dosage: 1 MG, 2X/DAY
     Route: 048
     Dates: start: 20110101
  2. FENOFIBRATE [Concomitant]
     Indication: BLOOD CHOLESTEROL INCREASED
  3. CHAMPIX [Suspect]
     Indication: TOBACCO USER
     Dosage: 0.5 MG, 1X/DAY
     Route: 048
     Dates: start: 20110226
  4. FENOFIBRATE [Concomitant]
     Indication: BLOOD TRIGLYCERIDES INCREASED
     Dosage: UNK
     Dates: start: 20110221

REACTIONS (10)
  - ASTHMATIC CRISIS [None]
  - NOCTURIA [None]
  - MALAISE [None]
  - DYSPNOEA [None]
  - BLOOD PRESSURE INCREASED [None]
  - NAUSEA [None]
  - FLATULENCE [None]
  - GAIT DISTURBANCE [None]
  - CHEST DISCOMFORT [None]
  - FATIGUE [None]
